FAERS Safety Report 16403903 (Version 1)
Quarter: 2019Q2

REPORT INFORMATION
  Report Type: Report from Study
  Country: JP (occurrence: JP)
  Receive Date: 20190607
  Receipt Date: 20190607
  Transmission Date: 20190711
  Serious: Yes (Death, Life-Threatening)
  Sender: FDA-Public Use
  Company Number: JP-ACTELION-A-CH2019-191415

PATIENT
  Age: 82 Year
  Sex: Female

DRUGS (2)
  1. OPSUMIT [Suspect]
     Active Substance: MACITENTAN
     Indication: PULMONARY ARTERIAL HYPERTENSION
     Dosage: 10 MG, QD
     Route: 048
     Dates: start: 20170614, end: 20170725
  2. OXYGEN. [Concomitant]
     Active Substance: OXYGEN

REACTIONS (4)
  - Alanine aminotransferase increased [Not Recovered/Not Resolved]
  - Cardiac failure congestive [Fatal]
  - White blood cell count increased [Not Recovered/Not Resolved]
  - Aspartate aminotransferase increased [Not Recovered/Not Resolved]

NARRATIVE: CASE EVENT DATE: 20170809
